FAERS Safety Report 4618091-1 (Version None)
Quarter: 2005Q2

REPORT INFORMATION
  Report Type: 
  Country: None (occurrence: None)
  Receive Date: 20050316
  Receipt Date: 20050110
  Transmission Date: 20051028
  Serious: Yes (Hospitalization)
  Sender: FDA-Public Use
  Company Number: S05-USA-00196-01

PATIENT
  Age: 32 Year
  Sex: Male

DRUGS (2)
  1. LEXAPRO [Suspect]
     Indication: DEPRESSION
     Dates: start: 20030101
  2. METHADONE HCL [Suspect]
     Indication: FACIAL PAIN

REACTIONS (2)
  - DRUG SCREEN FALSE POSITIVE [None]
  - OVERDOSE [None]
